FAERS Safety Report 23166110 (Version 2)
Quarter: 2023Q4

REPORT INFORMATION
  Report Type: Spontaneous
  Country: US (occurrence: US)
  Receive Date: 20231109
  Receipt Date: 20231120
  Transmission Date: 20240110
  Serious: Yes (Hospitalization, Other)
  Sender: FDA-Public Use
  Company Number: US-PFIZER INC-202300355958

PATIENT
  Age: 43 Year
  Sex: Male

DRUGS (1)
  1. BOSULIF [Suspect]
     Active Substance: BOSUTINIB MONOHYDRATE
     Dosage: 100 MG, 1X/DAY (ONCE DAILY IN THE MORNING WITH FOOD)
     Route: 048
     Dates: start: 202210

REACTIONS (9)
  - Pneumonia [Recovered/Resolved]
  - Headache [Not Recovered/Not Resolved]
  - Nausea [Recovered/Resolved]
  - Mental impairment [Recovered/Resolved]
  - Hypertension [Not Recovered/Not Resolved]
  - Neck pain [Unknown]
  - Facial pain [Unknown]
  - Anxiety [Unknown]
  - Sitting disability [Unknown]

NARRATIVE: CASE EVENT DATE: 20221001
